FAERS Safety Report 9349041 (Version 1)
Quarter: 2013Q2

REPORT INFORMATION
  Report Type: Report from Study
  Country: US (occurrence: US)
  Receive Date: 20130614
  Receipt Date: 20130614
  Transmission Date: 20140414
  Serious: Yes (Other)
  Sender: FDA-Public Use
  Company Number: US-ASTRAZENECA-2013SE41609

PATIENT
  Age: 805 Month
  Sex: Female
  Weight: 70.9 kg

DRUGS (3)
  1. LENALIDOMIDE [Suspect]
     Indication: PAPILLARY THYROID CANCER
     Dosage: 15 MG DAILY ON DAYS 1-21
     Route: 048
     Dates: start: 20130109
  2. AZD2171 [Suspect]
     Indication: PAPILLARY THYROID CANCER
     Route: 048
     Dates: start: 20130109
  3. PRINIVIL [Suspect]
     Route: 048

REACTIONS (1)
  - Proteinuria [Not Recovered/Not Resolved]
